FAERS Safety Report 8482742-4 (Version None)
Quarter: 2012Q3

REPORT INFORMATION
  Report Type: 
  Country: None (occurrence: None)
  Receive Date: 20120702
  Receipt Date: 20120625
  Transmission Date: 20120928
  Serious: Yes (Hospitalization)
  Sender: FDA-Public Use
  Company Number: JP-JNJFOC-20120611691

PATIENT
  Sex: Male

DRUGS (7)
  1. ALL OTHER THERAPEUTIC PRODUCTS [Concomitant]
     Route: 042
  2. CYCLOSPORINE [Concomitant]
     Route: 048
     Dates: start: 20111206, end: 20120227
  3. USTEKINUMAB [Suspect]
     Route: 058
     Dates: start: 20111206, end: 20111206
  4. USTEKINUMAB [Suspect]
     Route: 058
     Dates: start: 20111108, end: 20111108
  5. ALL OTHER THERAPEUTIC PRODUCTS [Concomitant]
     Route: 048
  6. USTEKINUMAB [Suspect]
     Indication: PSORIASIS
     Route: 058
     Dates: start: 20120228, end: 20120228
  7. TIGASON [Concomitant]
     Route: 048
     Dates: start: 20120228

REACTIONS (2)
  - INTERSTITIAL LUNG DISEASE [None]
  - DRUG INEFFECTIVE [None]
